FAERS Safety Report 5632627-3 (Version None)
Quarter: 2008Q1

REPORT INFORMATION
  Report Type: 
  Country: None (occurrence: None)
  Receive Date: 20080131
  Receipt Date: 20071005
  Transmission Date: 20080703
  Serious: No
  Sender: FDA-Public Use
  Company Number: 163-21880-07100447

PATIENT
  Age: 60 Year
  Sex: Female

DRUGS (2)
  1. REVLIMID [Suspect]
     Indication: MULTIPLE MYELOMA
     Dosage: 5, 15  MG, DAILY FOR 21 DAYS, ORAL
     Dates: start: 20070813, end: 20071001
  2. REVLIMID [Suspect]
     Indication: MULTIPLE MYELOMA
     Dosage: 5, 15  MG, DAILY FOR 21 DAYS, ORAL
     Dates: start: 20071009

REACTIONS (1)
  - MUSCLE SPASMS [None]
